FAERS Safety Report 10430939 (Version 1)
Quarter: 2014Q3

REPORT INFORMATION
  Report Type: Spontaneous
  Country: JP (occurrence: JP)
  Receive Date: 20140904
  Receipt Date: 20140904
  Transmission Date: 20150326
  Serious: Yes (Other)
  Sender: FDA-Public Use
  Company Number: PHHY2012JP135514

PATIENT
  Sex: Female

DRUGS (3)
  1. TASIGNA [Suspect]
     Active Substance: NILOTINIB
     Indication: CHRONIC MYELOID LEUKAEMIA
     Dosage: 300 MG
  2. TASIGNA [Suspect]
     Active Substance: NILOTINIB
     Dosage: 300 MG
     Dates: start: 201305
  3. TASIGNA [Suspect]
     Active Substance: NILOTINIB
     Dosage: 600 MG

REACTIONS (3)
  - Cholelithiasis [Unknown]
  - Blood bilirubin increased [Unknown]
  - Mental disorder [Unknown]
